FAERS Safety Report 8109189-4 (Version None)
Quarter: 2012Q1

REPORT INFORMATION
  Report Type: 
  Country: None (occurrence: None)
  Receive Date: 20120202
  Receipt Date: 20120104
  Transmission Date: 20120608
  Serious: No
  Sender: FDA-Public Use
  Company Number: US-AMGEN-USASP2012000529

PATIENT
  Age: 71 Year
  Sex: Male

DRUGS (1)
  1. ENBREL [Suspect]
     Indication: RHEUMATOID ARTHRITIS
     Dosage: 50 MG, QWK
     Dates: start: 20110809

REACTIONS (7)
  - HYPERHIDROSIS [None]
  - HYPOGLYCAEMIA [None]
  - DENTAL CARIES [None]
  - GINGIVAL BLEEDING [None]
  - STOMATITIS [None]
  - ASTHENIA [None]
  - BLOOD GLUCOSE DECREASED [None]
